FAERS Safety Report 14417539 (Version 1)
Quarter: 2018Q1

REPORT INFORMATION
  Report Type: Spontaneous
  Country: US (occurrence: US)
  Receive Date: 20180122
  Receipt Date: 20180122
  Transmission Date: 20180509
  Serious: Yes (Hospitalization)
  Sender: FDA-Public Use
  Company Number: US-ASTRAZENECA-2018SE06971

PATIENT
  Age: 93 Year
  Sex: Female
  Weight: 59 kg

DRUGS (16)
  1. ANASTROZOLE. [Concomitant]
     Active Substance: ANASTROZOLE
     Indication: BREAST CANCER
  2. LATANOPROST. [Concomitant]
     Active Substance: LATANOPROST
     Dosage: ONE DROP AT NIGHT IN EACH EYE
  3. ATORVASTATIN CALCIUM. [Concomitant]
     Active Substance: ATORVASTATIN CALCIUM
  4. CARVEDILOL. [Concomitant]
     Active Substance: CARVEDILOL
  5. LOSARTAN. [Concomitant]
     Active Substance: LOSARTAN
  6. REVATIO SOLID [Concomitant]
  7. CHLORTHALIDONE. [Concomitant]
     Active Substance: CHLORTHALIDONE
  8. TRAMADOL. [Concomitant]
     Active Substance: TRAMADOL
  9. LANTUS [Concomitant]
     Active Substance: INSULIN GLARGINE
     Dates: start: 201709
  10. BYDUREON [Suspect]
     Active Substance: EXENATIDE
     Indication: TYPE 2 DIABETES MELLITUS
     Route: 058
     Dates: start: 201709
  11. ACTOS [Concomitant]
     Active Substance: PIOGLITAZONE HYDROCHLORIDE
  12. JARDIANCE [Concomitant]
     Active Substance: EMPAGLIFLOZIN
  13. ELIQUIS [Concomitant]
     Active Substance: APIXABAN
  14. OMEGA 3 [Concomitant]
     Active Substance: OMEGA-3 FATTY ACIDS
  15. SYNTHROID [Concomitant]
     Active Substance: LEVOTHYROXINE SODIUM
  16. HERCEPTIN [Concomitant]
     Active Substance: TRASTUZUMAB
     Dosage: EVERY THREE WEEKS

REACTIONS (5)
  - Breast cancer female [Unknown]
  - Glaucoma [Unknown]
  - Intentional product misuse [Unknown]
  - Injection site pain [Recovered/Resolved]
  - Device malfunction [Unknown]

NARRATIVE: CASE EVENT DATE: 201709
